FAERS Safety Report 26103193 (Version 1)
Quarter: 2025Q4

REPORT INFORMATION
  Report Type: Spontaneous
  Country: IN (occurrence: US)
  Receive Date: 20251129
  Receipt Date: 20251129
  Transmission Date: 20260118
  Serious: No
  Sender: IBSA INSTITUT BIOCHIMIQUE
  Company Number: IN-IBSA PHARMA INC.-2025IBS000424

PATIENT

DRUGS (1)
  1. TIROSINT [Suspect]
     Active Substance: LEVOTHYROXINE SODIUM
     Indication: Product used for unknown indication
     Dosage: 62.5 MICROGRAM, QD (FOR YEARS)
     Dates: start: 2025

REACTIONS (5)
  - Onychoclasis [Unknown]
  - Trichorrhexis [Unknown]
  - Fatigue [Unknown]
  - Product storage error [Unknown]
  - Product shape issue [Unknown]

NARRATIVE: CASE EVENT DATE: 20250101
